FAERS Safety Report 20110771 (Version 1)
Quarter: 2021Q4

REPORT INFORMATION
  Report Type: Spontaneous
  Country: NO (occurrence: NO)
  Receive Date: 20211124
  Receipt Date: 20211124
  Transmission Date: 20220304
  Serious: Yes (Life-Threatening, Hospitalization)
  Sender: FDA-Public Use
  Company Number: None

PATIENT
  Age: 74 Year
  Sex: Female

DRUGS (14)
  1. DOXORUBICIN HYDROCHLORIDE [Suspect]
     Active Substance: DOXORUBICIN HYDROCHLORIDE
     Indication: Thymoma
     Route: 042
     Dates: start: 20210907, end: 20210910
  2. CISPLATIN [Suspect]
     Active Substance: CISPLATIN
     Indication: Thymoma
     Route: 042
     Dates: start: 20210907, end: 20210910
  3. ETOPOSIDE [Suspect]
     Active Substance: ETOPOSIDE
     Indication: Thymoma
     Route: 042
     Dates: start: 20210907, end: 20210910
  4. PANTOPRAZOLE SODIUM [Concomitant]
     Active Substance: PANTOPRAZOLE SODIUM
     Indication: Prophylaxis of nausea and vomiting
     Route: 065
     Dates: start: 20210907, end: 20210910
  5. PANTOPRAZOLE SODIUM [Concomitant]
     Active Substance: PANTOPRAZOLE SODIUM
     Dosage: A02BC02 - PANTOPRAZOL.
     Route: 065
  6. AKYNZEO [Concomitant]
     Active Substance: NETUPITANT\PALONOSETRON HYDROCHLORIDE
     Indication: Prophylaxis of nausea and vomiting
     Route: 065
     Dates: start: 20210907, end: 20210910
  7. FENAZON-KOFFEIN [Concomitant]
     Indication: Product used for unknown indication
     Route: 065
  8. DEXAMETHASONE [Concomitant]
     Active Substance: DEXAMETHASONE
     Indication: Prophylaxis of nausea and vomiting
     Route: 065
     Dates: start: 20210907, end: 20210910
  9. XARELTO [Concomitant]
     Active Substance: RIVAROXABAN
     Indication: Product used for unknown indication
     Route: 065
  10. ESTRADIOL HEMIHYDRATE\NORETHINDRONE ACETATE [Concomitant]
     Active Substance: ESTRADIOL HEMIHYDRATE\NORETHINDRONE ACETATE
     Indication: Product used for unknown indication
     Dosage: G03FA01- NORETHISTERONE AND ESTROGEN.
     Route: 065
  11. ELOCON [Concomitant]
     Active Substance: MOMETASONE FUROATE
     Indication: Product used for unknown indication
     Dosage: N02AJ06 - CODEINE AND PARACETAMOL
     Route: 065
  12. Paralgin Forte [Concomitant]
     Indication: Product used for unknown indication
     Route: 065
  13. METOPROLOL TARTRATE [Concomitant]
     Active Substance: METOPROLOL TARTRATE
     Indication: Product used for unknown indication
     Route: 065
  14. ALBUTEROL [Concomitant]
     Active Substance: ALBUTEROL
     Indication: Product used for unknown indication
     Route: 065

REACTIONS (1)
  - Mesenteric haemorrhage [Recovering/Resolving]

NARRATIVE: CASE EVENT DATE: 20210910
